FAERS Safety Report 4700325-6 (Version None)
Quarter: 2005Q2

REPORT INFORMATION
  Report Type: 
  Country: None (occurrence: None)
  Receive Date: 20050624
  Receipt Date: 20050624
  Transmission Date: 20051028
  Serious: No
  Sender: FDA-Public Use
  Company Number: None

PATIENT
  Age: 45 Year
  Sex: Female

DRUGS (1)
  1. CYMBALTA [Suspect]
     Indication: DEPRESSION
     Dosage: 30 MG X WK INCREASE 60 MG
     Dates: start: 20050602, end: 20050620

REACTIONS (2)
  - FORMICATION [None]
  - SENSORY DISTURBANCE [None]
